FAERS Safety Report 16942142 (Version 1)
Quarter: 2019Q4

REPORT INFORMATION
  Report Type: Spontaneous
  Country: GB (occurrence: GB)
  Receive Date: 20191021
  Receipt Date: 20191021
  Transmission Date: 20200122
  Serious: Yes (Other)
  Sender: FDA-Public Use
  Company Number: GB-MYLANLABS-2019M1098894

PATIENT
  Age: 44 Year
  Sex: Male
  Weight: 104 kg

DRUGS (3)
  1. VENTOLIN [Concomitant]
     Active Substance: ALBUTEROL SULFATE
     Dosage: UNK
  2. FEXOFENADINE [Suspect]
     Active Substance: FEXOFENADINE HYDROCHLORIDE
     Indication: RASH PRURITIC
     Dosage: 120 MILLIGRAM, QD
     Route: 048
     Dates: start: 20190621
  3. FOSTAIR [Concomitant]
     Active Substance: BECLOMETHASONE\FORMOTEROL
     Dosage: UNK (100/6.)

REACTIONS (5)
  - Suicidal ideation [Unknown]
  - Depressed mood [Unknown]
  - Apathy [Unknown]
  - Sleep disorder [Unknown]
  - Cognitive disorder [Unknown]

NARRATIVE: CASE EVENT DATE: 20190621
